FAERS Safety Report 24636203 (Version 2)
Quarter: 2024Q4

REPORT INFORMATION
  Report Type: Spontaneous
  Country: PL (occurrence: PL)
  Receive Date: 20241119
  Receipt Date: 20241126
  Transmission Date: 20250115
  Serious: Yes (Death, Life-Threatening, Hospitalization, Other)
  Sender: RANBAXY
  Company Number: PL-SUN PHARMACEUTICAL INDUSTRIES LTD-2024R1-479756

PATIENT
  Age: 70 Year
  Sex: Male

DRUGS (1)
  1. METFORMIN [Suspect]
     Active Substance: METFORMIN HYDROCHLORIDE
     Indication: Type 2 diabetes mellitus
     Dosage: UNK
     Route: 065

REACTIONS (6)
  - Colorectal cancer [Fatal]
  - Sepsis [Fatal]
  - Vomiting [Fatal]
  - Gastrointestinal obstruction [Fatal]
  - Condition aggravated [Fatal]
  - Metastases to peritoneum [Fatal]
